FAERS Safety Report 20186106 (Version 2)
Quarter: 2025Q3

REPORT INFORMATION
  Report Type: Spontaneous
  Country: EU (occurrence: EU)
  Receive Date: 20211215
  Receipt Date: 20250827
  Transmission Date: 20251020
  Serious: Yes (Hospitalization, Other)
  Sender: AUROBINDO
  Company Number: EU-BBM-202101402

PATIENT
  Age: 54 Year
  Sex: Female

DRUGS (3)
  1. ARIPIPRAZOLE [Suspect]
     Active Substance: ARIPIPRAZOLE
     Indication: Mental disorder
     Route: 065
  2. PROPOFOL [Suspect]
     Active Substance: PROPOFOL
     Indication: Sedative therapy
     Route: 042
  3. PROPOFOL [Suspect]
     Active Substance: PROPOFOL
     Route: 042

REACTIONS (3)
  - Extrapyramidal disorder [Recovered/Resolved]
  - Adverse drug reaction [Recovered/Resolved]
  - Product use in unapproved indication [Unknown]
